FAERS Safety Report 5396681-9 (Version None)
Quarter: 2007Q3

REPORT INFORMATION
  Report Type: 
  Country: None (occurrence: None)
  Receive Date: 20070725
  Receipt Date: 20070713
  Transmission Date: 20080115
  Serious: Yes (Hospitalization)
  Sender: FDA-Public Use
  Company Number: JP-MERCK-0707USA03453

PATIENT
  Age: 72 Year
  Sex: Female
  Weight: 52 kg

DRUGS (5)
  1. COZAAR [Suspect]
     Route: 048
  2. DIGOXIN [Suspect]
     Route: 065
  3. CARVEDILOL [Concomitant]
     Route: 065
  4. FUROSEMIDE [Concomitant]
     Route: 065
  5. SPIRONOLACTONE [Concomitant]
     Route: 065

REACTIONS (10)
  - ACUTE PRERENAL FAILURE [None]
  - ANOREXIA [None]
  - ATRIOVENTRICULAR BLOCK FIRST DEGREE [None]
  - CARDIOACTIVE DRUG LEVEL ABOVE THERAPEUTIC [None]
  - DEHYDRATION [None]
  - DIARRHOEA [None]
  - HYPERKALAEMIA [None]
  - PHOTOPSIA [None]
  - THERAPEUTIC AGENT TOXICITY [None]
  - VISUAL FIELD DEFECT [None]
